FAERS Safety Report 9306911 (Version 3)
Quarter: 2013Q4

REPORT INFORMATION
  Report Type: Spontaneous
  Country: US (occurrence: None)
  Receive Date: 20130314
  Receipt Date: 20131028
  Transmission Date: 20140711
  Serious: Yes (Other)
  Sender: FDA-Public Use
  Company Number: AUR-APL-2013-01397

PATIENT
  Age: 41 Year
  Sex: Female
  Weight: 109 kg

DRUGS (9)
  1. CITALOPRAM [Suspect]
     Indication: DEPRESSION
  2. MELOXICAM [Suspect]
     Indication: OSTEOARTHRITIS
  3. LYRICA [Suspect]
     Indication: FIBROMYALGIA
     Dosage: 200 MG (100 MG, 2 IN 1 D), UNKNOWN
     Dates: start: 201202
  4. WELLBUTRIN SR [Suspect]
     Indication: DEPRESSION
  5. TRAZODONE (TRAZODONE) [Suspect]
     Indication: DEPRESSION
  6. CYCLOBENZAPRINE (CYCLOBENZAPINE) [Concomitant]
  7. TRAMADOL (TRAMADOL) [Concomitant]
  8. BUTALBITAL/ACETAMINOPHEN/CAFFEINE (AXOTAL/00727001/) [Concomitant]
  9. VITAMIN B12 (CYANOCOBALAMIN) [Concomitant]

REACTIONS (11)
  - Weight increased [None]
  - Vision blurred [None]
  - Tendonitis [None]
  - Tarsal tunnel syndrome [None]
  - Abasia [None]
  - Dysstasia [None]
  - Depression [None]
  - Osteoarthritis [None]
  - Impaired work ability [None]
  - Fibromyalgia [None]
  - Economic problem [None]
